FAERS Safety Report 11241149 (Version 1)
Quarter: 2015Q3

REPORT INFORMATION
  Report Type: Spontaneous
  Country: US (occurrence: US)
  Receive Date: 20150706
  Receipt Date: 20150706
  Transmission Date: 20151125
  Serious: No
  Sender: FDA-Public Use
  Company Number: US-GLAXOSMITHKLINE-US2015092239

PATIENT
  Sex: Male

DRUGS (18)
  1. ALLEGRA [Concomitant]
     Active Substance: FEXOFENADINE HYDROCHLORIDE
  2. ULORIC [Concomitant]
     Active Substance: FEBUXOSTAT
  3. ZANTAC [Concomitant]
     Active Substance: RANITIDINE HYDROCHLORIDE
  4. NASONEX [Concomitant]
     Active Substance: MOMETASONE FUROATE
  5. VYTORIN [Concomitant]
     Active Substance: EZETIMIBE\SIMVASTATIN
  6. RAMIPRIL. [Concomitant]
     Active Substance: RAMIPRIL
  7. NUVIGIL [Concomitant]
     Active Substance: ARMODAFINIL
  8. ACTOS [Concomitant]
     Active Substance: PIOGLITAZONE HYDROCHLORIDE
  9. ASPIRIN. [Concomitant]
     Active Substance: ASPIRIN
  10. FUROSEMIDE. [Concomitant]
     Active Substance: FUROSEMIDE
  11. ADVAIR DISKUS [Suspect]
     Active Substance: FLUTICASONE PROPIONATE\SALMETEROL XINAFOATE
     Indication: DYSPNOEA
     Route: 055
  12. BYSTOLIC [Concomitant]
     Active Substance: NEBIVOLOL HYDROCHLORIDE
  13. NEXIUM [Concomitant]
     Active Substance: ESOMEPRAZOLE MAGNESIUM
  14. REFRESH EYE DROPS [Concomitant]
  15. VALSARTAN. [Concomitant]
     Active Substance: VALSARTAN
  16. SINGULAIR [Concomitant]
     Active Substance: MONTELUKAST SODIUM
  17. TEKTURNA [Concomitant]
     Active Substance: ALISKIREN HEMIFUMARATE
  18. ONGLYZA [Concomitant]
     Active Substance: SAXAGLIPTIN HYDROCHLORIDE

REACTIONS (1)
  - Drug hypersensitivity [Recovered/Resolved]
